FAERS Safety Report 19832979 (Version 2)
Quarter: 2021Q4

REPORT INFORMATION
  Report Type: Report from Study
  Country: US (occurrence: US)
  Receive Date: 20210915
  Receipt Date: 20211012
  Transmission Date: 20220303
  Serious: Yes (Other)
  Sender: FDA-Public Use
  Company Number: NVSC2021US206216

PATIENT
  Age: 64 Year
  Sex: Male

DRUGS (1)
  1. ENTRESTO [Suspect]
     Active Substance: SACUBITRIL\VALSARTAN
     Indication: Cardiac failure
     Dosage: 49.51 MG, BID
     Route: 048
     Dates: start: 20201201

REACTIONS (4)
  - Prostate cancer stage IV [Not Recovered/Not Resolved]
  - Prostate cancer metastatic [Not Recovered/Not Resolved]
  - Hypertension [Recovered/Resolved]
  - Fluid retention [Recovered/Resolved]

NARRATIVE: CASE EVENT DATE: 20210201
